FAERS Safety Report 12535250 (Version 2)
Quarter: 2016Q3

REPORT INFORMATION
  Report Type: Spontaneous
  Country: RU (occurrence: RU)
  Receive Date: 20160707
  Receipt Date: 20160906
  Transmission Date: 20161109
  Serious: Yes (Death, Hospitalization, Congenital Anomaly)
  Sender: FDA-Public Use
  Company Number: RU-GLENMARK PHARMACEUTICALS INC, USA.-2016GMK023475

PATIENT

DRUGS (1)
  1. GLEVO [Suspect]
     Active Substance: LEVOFLOXACIN
     Indication: PRODUCT USED FOR UNKNOWN INDICATION
     Dosage: 500 MG, QD
     Route: 064
     Dates: start: 20151221, end: 20161226

REACTIONS (3)
  - Developmental delay [Unknown]
  - Foetal exposure during pregnancy [Unknown]
  - Haemoglobin decreased [Fatal]

NARRATIVE: CASE EVENT DATE: 20160622
